FAERS Safety Report 8275743-2 (Version None)
Quarter: 2012Q2

REPORT INFORMATION
  Report Type: 
  Country: None (occurrence: None)
  Receive Date: 20120410
  Receipt Date: 20120410
  Transmission Date: 20120825
  Serious: No
  Sender: FDA-Public Use
  Company Number: None

PATIENT
  Age: 64 Year
  Sex: Male
  Weight: 111.1313 kg

DRUGS (4)
  1. VENLAFAXINE HYDROCHLORIDE [Suspect]
     Indication: PANIC ATTACK
     Dosage: 1 TABLET BID 1X DAY ORAL
     Route: 048
     Dates: start: 20111025, end: 20111026
  2. VENLAFAXINE HYDROCHLORIDE [Suspect]
     Indication: ANXIETY
     Dosage: 1 TABLET BID 1X DAY ORAL
     Route: 048
     Dates: start: 20111025, end: 20111026
  3. RISPERIDONE [Suspect]
     Indication: PANIC ATTACK
     Dosage: 1 TAB PER DAY 2X DAY ORAL
     Route: 048
     Dates: start: 20111117, end: 20111118
  4. RISPERIDONE [Suspect]
     Indication: ANXIETY
     Dosage: 1 TAB PER DAY 2X DAY ORAL
     Route: 048
     Dates: start: 20111117, end: 20111118

REACTIONS (20)
  - APHAGIA [None]
  - THROAT TIGHTNESS [None]
  - PALPITATIONS [None]
  - MUSCLE TWITCHING [None]
  - PAIN [None]
  - INSOMNIA [None]
  - PHOTOPSIA [None]
  - FEELING HOT [None]
  - JOINT STIFFNESS [None]
  - DEHYDRATION [None]
  - RESTLESSNESS [None]
  - URINARY RETENTION [None]
  - CONSTIPATION [None]
  - DYSPHAGIA [None]
  - PANIC ATTACK [None]
  - CONFUSIONAL STATE [None]
  - MUSCULOSKELETAL STIFFNESS [None]
  - POLLAKIURIA [None]
  - HYPERHIDROSIS [None]
  - CHEST PAIN [None]
